FAERS Safety Report 20818269 (Version 1)
Quarter: 2022Q2

REPORT INFORMATION
  Report Type: Spontaneous
  Country: LV (occurrence: LV)
  Receive Date: 20220512
  Receipt Date: 20220512
  Transmission Date: 20220721
  Serious: Yes (Hospitalization, Other)
  Sender: FDA-Public Use
  Company Number: LV-SUN PHARMACEUTICAL INDUSTRIES LTD-2022RR-333620

PATIENT
  Age: 43 Year
  Sex: Male

DRUGS (19)
  1. LOPINAVIR\RITONAVIR [Suspect]
     Active Substance: LOPINAVIR\RITONAVIR
     Indication: Tuberculosis
     Dosage: UNK
  2. LAMIVUDINE\ZIDOVUDINE [Suspect]
     Active Substance: LAMIVUDINE\ZIDOVUDINE
     Indication: HIV infection
     Dosage: UNK
     Route: 065
  3. CLARITHROMYCIN [Suspect]
     Active Substance: CLARITHROMYCIN
     Indication: Tuberculosis
     Dosage: UNK
     Route: 065
  4. CLARITHROMYCIN [Suspect]
     Active Substance: CLARITHROMYCIN
     Indication: Atypical mycobacterial infection
     Dosage: UNK
     Route: 065
  5. DOLUTEGRAVIR [Suspect]
     Active Substance: DOLUTEGRAVIR
     Indication: HIV infection
     Dosage: UNK
     Route: 065
  6. ELVITEGRAVIR [Suspect]
     Active Substance: ELVITEGRAVIR
     Indication: Tuberculosis
     Dosage: UNK
     Route: 065
  7. ELVITEGRAVIR [Suspect]
     Active Substance: ELVITEGRAVIR
     Indication: HIV infection
  8. AMOXICILLIN\CLAVULANATE POTASSIUM [Suspect]
     Active Substance: AMOXICILLIN\CLAVULANATE POTASSIUM
     Indication: Tuberculosis
     Dosage: UNK
  9. MARAVIROC [Suspect]
     Active Substance: MARAVIROC
     Indication: Tuberculosis
     Dosage: UNK
  10. ISONIAZID [Suspect]
     Active Substance: ISONIAZID
     Indication: Tuberculosis
     Dosage: UNK
  11. RIFAMPIN [Suspect]
     Active Substance: RIFAMPIN
     Indication: Tuberculosis
     Dosage: UNK
  12. ETHAMBUTOL [Suspect]
     Active Substance: ETHAMBUTOL HYDROCHLORIDE
     Indication: Disseminated tuberculosis
     Dosage: UNK
     Route: 065
  13. PYRAZINAMIDE [Suspect]
     Active Substance: PYRAZINAMIDE
     Indication: Tuberculosis
     Dosage: UNK
  14. MOXIFLOXACIN [Suspect]
     Active Substance: MOXIFLOXACIN
     Indication: Disseminated tuberculosis
     Dosage: UNK
     Route: 065
  15. COBICISTAT\DARUNAVIR ETHANOLATE [Suspect]
     Active Substance: COBICISTAT\DARUNAVIR ETHANOLATE
     Indication: HIV infection
     Dosage: UNK
     Route: 065
  16. VORICONAZOLE [Suspect]
     Active Substance: VORICONAZOLE
     Indication: Disseminated tuberculosis
     Dosage: UNK
     Route: 065
  17. DARUNAVIR [Concomitant]
     Active Substance: DARUNAVIR
     Dosage: UNK
  18. FLUCONAZOLE [Concomitant]
     Active Substance: FLUCONAZOLE
     Dosage: UNK
  19. SULFAMETHOXAZOLE\TRIMETHOPRIM [Concomitant]
     Active Substance: SULFAMETHOXAZOLE\TRIMETHOPRIM
     Dosage: UNK

REACTIONS (1)
  - Drug ineffective [Unknown]

NARRATIVE: CASE EVENT DATE: 20180101
